FAERS Safety Report 16257764 (Version 2)
Quarter: 2019Q3

REPORT INFORMATION
  Report Type: Spontaneous
  Country: US (occurrence: US)
  Receive Date: 20190430
  Receipt Date: 20190801
  Transmission Date: 20191004
  Serious: Yes (Other)
  Sender: FDA-Public Use
  Company Number: US-ASTRAZENECA-2019SE65056

PATIENT
  Sex: Female

DRUGS (22)
  1. NEXIUM [Suspect]
     Active Substance: ESOMEPRAZOLE MAGNESIUM
     Route: 048
     Dates: start: 1985
  2. PRILOSEC OTC [Suspect]
     Active Substance: OMEPRAZOLE MAGNESIUM
     Route: 048
  3. AMOXICILLIN. [Concomitant]
     Active Substance: AMOXICILLIN
     Indication: BACTERIAL INFECTION
     Dates: start: 20130318
  4. NEXIUM [Suspect]
     Active Substance: ESOMEPRAZOLE MAGNESIUM
     Dosage: ESOMEPRAZOLE 40 MILLIGRAM, QD
     Route: 065
  5. NEXIUM 24HR [Suspect]
     Active Substance: ESOMEPRAZOLE MAGNESIUM
     Dosage: 20 MILLIGRAM, QD
     Route: 048
  6. PREVACID [Suspect]
     Active Substance: LANSOPRAZOLE
     Route: 048
  7. PREVACID 24 HR [Suspect]
     Active Substance: LANSOPRAZOLE
     Route: 048
  8. PRILOSEC [Suspect]
     Active Substance: OMEPRAZOLE MAGNESIUM
     Dosage: OMEPRAZOLE 20 MILLIGRAM, QD
     Route: 065
  9. PREVACID [Suspect]
     Active Substance: LANSOPRAZOLE
     Dosage: LANSOPRAZOLE
     Route: 065
  10. PROTONIX [Suspect]
     Active Substance: PANTOPRAZOLE SODIUM
     Route: 048
     Dates: start: 20040517, end: 20100316
  11. PRILOSEC [Suspect]
     Active Substance: OMEPRAZOLE MAGNESIUM
     Dosage: 40 MILLIGRAM, QD
     Route: 048
  12. PROTONIX [Suspect]
     Active Substance: PANTOPRAZOLE SODIUM
     Route: 048
     Dates: start: 20140121, end: 20150408
  13. HYDROXYZINE [Concomitant]
     Active Substance: HYDROXYZINE HYDROCHLORIDE
     Indication: ANXIETY
     Dates: start: 2013
  14. PROTONIX [Suspect]
     Active Substance: PANTOPRAZOLE SODIUM
     Dosage: GENERIC
     Route: 048
     Dates: start: 20090723, end: 20160919
  15. PLAVIX [Concomitant]
     Active Substance: CLOPIDOGREL BISULFATE
     Indication: TRANSIENT ISCHAEMIC ATTACK
     Dates: start: 2004
  16. NEXIUM [Suspect]
     Active Substance: ESOMEPRAZOLE MAGNESIUM
     Dosage: 40 MILLIGRAM, QD
     Route: 048
  17. CITALOPRAM [Concomitant]
     Active Substance: CITALOPRAM HYDROBROMIDE
     Dates: start: 2013, end: 2016
  18. ALLOPURINOL. [Concomitant]
     Active Substance: ALLOPURINOL
     Indication: GOUT
  19. CARVEDILOL. [Concomitant]
     Active Substance: CARVEDILOL
     Indication: HYPERTENSION
     Dates: start: 20130531
  20. CEFUROXIME. [Concomitant]
     Active Substance: CEFUROXIME
     Indication: BACTERIAL INFECTION
     Dates: start: 20131202
  21. GABAPENTIN. [Concomitant]
     Active Substance: GABAPENTIN
     Indication: PAIN
     Dates: start: 2007, end: 2014
  22. LIPITOR [Concomitant]
     Active Substance: ATORVASTATIN CALCIUM
     Indication: HYPERLIPIDAEMIA
     Dates: start: 2007

REACTIONS (3)
  - Acute kidney injury [Not Recovered/Not Resolved]
  - Chronic kidney disease [Not Recovered/Not Resolved]
  - End stage renal disease [Not Recovered/Not Resolved]
